FAERS Safety Report 25428812 (Version 2)
Quarter: 2025Q2

REPORT INFORMATION
  Report Type: Spontaneous
  Country: CA (occurrence: CA)
  Receive Date: 20250612
  Receipt Date: 20250618
  Transmission Date: 20250716
  Serious: Yes (Hospitalization, Other)
  Sender: APOTEX
  Company Number: CA-APOTEX-2025AP008153

PATIENT
  Sex: Female
  Weight: 60 kg

DRUGS (6)
  1. PRAMIPEXOLE [Suspect]
     Active Substance: PRAMIPEXOLE
     Indication: Parkinson^s disease
     Route: 065
  2. CARBIDOPA\LEVODOPA [Suspect]
     Active Substance: CARBIDOPA\LEVODOPA
     Indication: Parkinson^s disease
     Route: 065
  3. CARBIDOPA\LEVODOPA [Suspect]
     Active Substance: CARBIDOPA\LEVODOPA
     Route: 065
  4. CARBIDOPA\LEVODOPA [Suspect]
     Active Substance: CARBIDOPA\LEVODOPA
     Dosage: 100/25 MG FOUR TIMES PER DAY (TOTAL DAILY DOSE=400/100 MG)
     Route: 065
  5. CARBIDOPA\LEVODOPA [Suspect]
     Active Substance: CARBIDOPA\LEVODOPA
     Dosage: 50/12.5 MG EVERY 2-HOUR INTERVALS BETWEEN THE HOURS OF 07:00 AND 19:00 (TOTAL DAILY DOSE =350/87.5 M
     Route: 065
  6. AMLODIPINE [Concomitant]
     Active Substance: AMLODIPINE BESYLATE
     Indication: Hypertension
     Route: 065

REACTIONS (8)
  - Hallucination [Unknown]
  - Altered state of consciousness [Recovered/Resolved]
  - Respiratory failure [Recovered/Resolved]
  - Acute kidney injury [Recovering/Resolving]
  - Pneumonia aspiration [Unknown]
  - Rhabdomyolysis [Recovered/Resolved]
  - Dystonia [Recovering/Resolving]
  - Dyskinesia [Recovering/Resolving]
